FAERS Safety Report 5041035-8 (Version None)
Quarter: 2006Q2

REPORT INFORMATION
  Report Type: 
  Country: None (occurrence: None)
  Receive Date: 20060630
  Receipt Date: 20060630
  Transmission Date: 20061013
  Serious: Yes (Hospitalization)
  Sender: FDA-Public Use
  Company Number: None

PATIENT
  Age: 69 Year
  Sex: Male

DRUGS (4)
  1. OXALIPLATIN [Suspect]
     Indication: GASTRIC CANCER
     Dosage: 85 MG/M2 Q 2 WEEKLY IV
     Route: 042
     Dates: start: 20060614
  2. TAXOTERE [Suspect]
  3. FUDR [Suspect]
     Dosage: 110 MG/M2 500 MG/M2 WEEKLY IV
     Route: 042
  4. LEUCOVORIN CALCIUM [Suspect]

REACTIONS (2)
  - ANAEMIA [None]
  - BRADYCARDIA [None]
